FAERS Safety Report 10032159 (Version 1)
Quarter: 2014Q1

REPORT INFORMATION
  Report Type: Spontaneous
  Country: JP (occurrence: JP)
  Receive Date: 20140324
  Receipt Date: 20140324
  Transmission Date: 20141002
  Serious: Yes (Other)
  Sender: FDA-Public Use
  Company Number: JP-ROCHE-1367845

PATIENT
  Age: 47 Year
  Sex: Female

DRUGS (3)
  1. AVASTIN [Suspect]
     Indication: COLON CANCER
     Route: 041
  2. XELODA [Suspect]
     Indication: COLON CANCER
     Route: 048
  3. ELPLAT [Concomitant]
     Indication: COLON CANCER
     Route: 041

REACTIONS (2)
  - Tooth loss [Unknown]
  - Stomatitis [Unknown]
